FAERS Safety Report 10335887 (Version 1)
Quarter: 2014Q3

REPORT INFORMATION
  Report Type: Spontaneous
  Country: US (occurrence: US)
  Receive Date: 20140723
  Receipt Date: 20140723
  Transmission Date: 20150326
  Serious: No
  Sender: FDA-Public Use
  Company Number: US-BRISTOL-MYERS SQUIBB COMPANY-19195320

PATIENT
  Age: 82 Year
  Sex: Male
  Weight: 72.11 kg

DRUGS (3)
  1. XARELTO [Concomitant]
     Active Substance: RIVAROXABAN
  2. PRADAXA [Concomitant]
     Active Substance: DABIGATRAN ETEXILATE MESYLATE
     Dosage: ONE TABLET IN THE MORNING FOR THE FIRST WEEK. THEN TWICE DAILY
  3. COUMADIN [Suspect]
     Active Substance: WARFARIN SODIUM
     Indication: ATRIAL FIBRILLATION
     Dosage: 5 MG TABLETA ALSO TAKEN.?COUMADIN START 3 YEAR AGO

REACTIONS (1)
  - International normalised ratio fluctuation [Unknown]
